FAERS Safety Report 5511188-3 (Version None)
Quarter: 2007Q4

REPORT INFORMATION
  Report Type: 
  Country: None (occurrence: None)
  Receive Date: 20071109
  Receipt Date: 20071031
  Transmission Date: 20080405
  Serious: Yes (Other)
  Sender: FDA-Public Use
  Company Number: CN-ELI_LILLY_AND_COMPANY-CN200710004708

PATIENT
  Sex: Female

DRUGS (6)
  1. GEMZAR [Suspect]
     Indication: METASTATIC GASTRIC CANCER
     Dosage: 750MG/M2 ON DAYS 1 AND 4 EVERY 3 WEEKS
     Route: 042
     Dates: start: 20070921, end: 20070928
  2. FLUOROURACIL [Concomitant]
     Indication: GASTRIC CANCER
     Dosage: 750 MG/M2, D1-D4 ,Q3W
     Route: 042
     Dates: start: 20070921, end: 20070924
  3. ISOSORBIDE MONONITRATE [Concomitant]
     Indication: HYPERTENSION
     Dosage: 20 MG, 2/D
     Route: 048
  4. FELODIPINE [Concomitant]
     Indication: HYPERTENSION
     Dosage: 10 MG, DAILY (1/D)
     Route: 048
  5. ENALAPRIL MALEATE [Concomitant]
     Indication: HYPERTENSION
     Dosage: 5 MG, 3/D
     Route: 048
  6. METOPROLOL TARTRATE [Concomitant]
     Indication: HYPERTENSION
     Dosage: 12.5 MG, 2/D
     Route: 048

REACTIONS (5)
  - BLOOD PRESSURE SYSTOLIC INCREASED [None]
  - CHEST PAIN [None]
  - EXTRASYSTOLES [None]
  - PULSE ABNORMAL [None]
  - TACHYCARDIA [None]
